FAERS Safety Report 12828536 (Version 1)
Quarter: 2016Q4

REPORT INFORMATION
  Report Type: Spontaneous
  Country: US (occurrence: US)
  Receive Date: 20161007
  Receipt Date: 20161007
  Transmission Date: 20170207
  Serious: No
  Sender: FDA-Public Use
  Company Number: US-SA-2015SA146231

PATIENT
  Age: 56 Year
  Sex: Male

DRUGS (3)
  1. RITALIN - SLOW RELEASE [Concomitant]
  2. LEXAPRO [Concomitant]
     Active Substance: ESCITALOPRAM OXALATE
  3. AUBAGIO [Suspect]
     Active Substance: TERIFLUNOMIDE
     Indication: MULTIPLE SCLEROSIS
     Route: 048

REACTIONS (4)
  - Anxiety [Unknown]
  - Dizziness [Unknown]
  - Anaemia [Unknown]
  - Emotional disorder [Unknown]
